FAERS Safety Report 24029390 (Version 2)
Quarter: 2024Q3

REPORT INFORMATION
  Report Type: Spontaneous
  Country: CA (occurrence: CA)
  Receive Date: 20240628
  Receipt Date: 20240711
  Transmission Date: 20241016
  Serious: Yes (Other)
  Sender: PFIZER
  Company Number: CA-PFIZER INC-PV202400062832

PATIENT
  Age: 60 Year
  Sex: Female
  Weight: 79 kg

DRUGS (2)
  1. ZIRABEV [Suspect]
     Active Substance: BEVACIZUMAB-BVZR
     Indication: Glioblastoma
     Dosage: 790 MG EVERY 2 WEEKS
     Route: 042
     Dates: start: 20240513
  2. ZIRABEV [Suspect]
     Active Substance: BEVACIZUMAB-BVZR
     Dosage: 790 MG EVERY 2 WEEKS
     Route: 042
     Dates: start: 20240527

REACTIONS (4)
  - Thrombosis [Unknown]
  - Gait disturbance [Unknown]
  - Weight decreased [Unknown]
  - Inappropriate schedule of product administration [Unknown]
